FAERS Safety Report 19224215 (Version 10)
Quarter: 2021Q4

REPORT INFORMATION
  Report Type: Report from Study
  Country: KR (occurrence: KR)
  Receive Date: 20210506
  Receipt Date: 20211209
  Transmission Date: 20220303
  Serious: Yes (Hospitalization)
  Sender: FDA-Public Use
  Company Number: KR-GLAXOSMITHKLINE-KR2021085580

PATIENT
  Age: 67 Year
  Sex: Male
  Weight: 64 kg

DRUGS (18)
  1. DOSTARLIMAB [Suspect]
     Active Substance: DOSTARLIMAB
     Indication: Non-small cell lung cancer
     Dosage: DOSE AT CYCLE 1 - DAY 1
     Dates: start: 20210225, end: 20210225
  2. DOSTARLIMAB [Suspect]
     Active Substance: DOSTARLIMAB
     Dosage: DOSE AT DAY 1
     Dates: start: 20210318, end: 20210318
  3. PEMETREXED [Suspect]
     Active Substance: PEMETREXED
     Indication: Non-small cell lung cancer
     Dosage: DOSE AT CYCLE 1 - DAY 1
     Route: 042
     Dates: start: 20210225, end: 20210225
  4. PEMETREXED [Suspect]
     Active Substance: PEMETREXED
     Dosage: DOSE AT DAY 1
     Route: 042
     Dates: start: 20210318, end: 20210318
  5. CARBOPLATIN [Suspect]
     Active Substance: CARBOPLATIN
     Indication: Non-small cell lung cancer
     Dosage: DOSE AT CYCLE 1 - DAY 1
     Route: 042
     Dates: start: 20210225, end: 20210225
  6. CARBOPLATIN [Suspect]
     Active Substance: CARBOPLATIN
     Dosage: DOSE AT DAY 1
     Route: 042
     Dates: start: 20210318, end: 20210318
  7. EMPAGLIFLOZIN\METFORMIN HYDROCHLORIDE [Concomitant]
     Active Substance: EMPAGLIFLOZIN\METFORMIN HYDROCHLORIDE
     Indication: Diabetes mellitus
     Dosage: 1 DF, QD
     Route: 048
     Dates: start: 2018
  8. GLYCOPYRRONIUM\INDACATEROL [Concomitant]
     Active Substance: GLYCOPYRRONIUM\INDACATEROL
     Indication: Asthma
     Dosage: 1 DF, BID
     Route: 055
     Dates: start: 2020
  9. ALOXI INJECTION [Concomitant]
     Indication: Premedication
     Dosage: 0.25 MG (FREQUENCY = OTHER: Q3W)
     Route: 042
     Dates: start: 20210225
  10. ACTINAMIDE INJECTION [Concomitant]
     Indication: Premedication
     Dosage: 1 MG (FREQUENCY = OTHER: Q3CYCLE)
     Route: 030
     Dates: start: 20210225
  11. FOLCID [Concomitant]
     Indication: Premedication
     Dosage: 1 MG, QD
     Route: 048
     Dates: start: 20210225
  12. DEXAMETHASONE [Concomitant]
     Active Substance: DEXAMETHASONE
     Indication: Premedication
     Dosage: 4 MG, BID
     Route: 048
     Dates: start: 20210225
  13. MAGNESIUM OXIDE [Concomitant]
     Active Substance: MAGNESIUM OXIDE
     Indication: Constipation prophylaxis
     Dosage: 500 MG (FREQUENCY = AS NEEDED)
     Route: 048
     Dates: start: 20210225
  14. DUPHALAC EASY SYRUP [Concomitant]
     Indication: Constipation prophylaxis
     Dosage: 15 ML (FREQUENCY = AS NEEDED)
     Route: 048
     Dates: start: 20210225
  15. METOCLOPRAMIDE HYDROCHLORIDE [Concomitant]
     Active Substance: METOCLOPRAMIDE HYDROCHLORIDE
     Indication: Prophylaxis of nausea and vomiting
     Dosage: 10 MG (FREQUENCY = AS NEEDED)
     Route: 048
     Dates: start: 20210225
  16. LOPERAMIDE [Concomitant]
     Active Substance: LOPERAMIDE
     Indication: Prophylaxis against diarrhoea
     Dosage: 2 MG (FREQUENCY = AS NEEDED)
     Route: 048
     Dates: start: 20210225
  17. TANTUM [Concomitant]
     Active Substance: BENZYDAMINE HYDROCHLORIDE
     Indication: Mucosal inflammation
     Dosage: 100 ML (FREQUENCY = AS NEEDED)
     Route: 050
     Dates: start: 20210225
  18. LAFUTIDINE [Concomitant]
     Active Substance: LAFUTIDINE
     Indication: Gastritis prophylaxis
     Dosage: 10 MG, BID
     Route: 048
     Dates: start: 20210408

REACTIONS (1)
  - Pneumonia [Recovered/Resolved]

NARRATIVE: CASE EVENT DATE: 20210408
